FAERS Safety Report 14623989 (Version 4)
Quarter: 2020Q1

REPORT INFORMATION
  Report Type: Spontaneous
  Country: DE (occurrence: DE)
  Receive Date: 20180312
  Receipt Date: 20200108
  Transmission Date: 20200409
  Serious: Yes (Other)
  Sender: FDA-Public Use
  Company Number: DE-ROCHE-2085452

PATIENT
  Age: 59 Year
  Sex: Male

DRUGS (10)
  1. CYCLOPHOSPHAMIDE. [Suspect]
     Active Substance: CYCLOPHOSPHAMIDE
     Indication: LYMPHADENOPATHY
     Dosage: SINCE THE START DATE WAS MENTIONED AS 2-6/2015 SO, CONSERVATIVELY 2015 HAS BEEN CAPTURED
     Route: 065
     Dates: start: 201502, end: 201506
  2. CYCLOPHOSPHAMIDE. [Suspect]
     Active Substance: CYCLOPHOSPHAMIDE
     Indication: CHRONIC LYMPHOCYTIC LEUKAEMIA
     Route: 065
  3. FLUDARABINE PHOSPHATE. [Suspect]
     Active Substance: FLUDARABINE PHOSPHATE
     Indication: LYMPHADENOPATHY
     Route: 065
     Dates: start: 20150201, end: 20150601
  4. RITUXIMAB. [Suspect]
     Active Substance: RITUXIMAB
     Indication: IMMUNOSUPPRESSANT DRUG THERAPY
     Dosage: SINCE THE START DATE WAS MENTIONED AS 2-6/2015 SO, CONSERVATIVELY 2015 HAS BEEN CAPTURED
     Route: 065
     Dates: start: 201502, end: 201506
  5. FLUDARABINE [Suspect]
     Active Substance: FLUDARABINE PHOSPHATE
     Indication: CHRONIC LYMPHOCYTIC LEUKAEMIA
     Route: 065
  6. FLUDARABINE [Suspect]
     Active Substance: FLUDARABINE PHOSPHATE
     Indication: IMMUNOSUPPRESSANT DRUG THERAPY
     Dosage: SINCE THE START DATE WAS MENTIONED AS 2-6/2015 SO, CONSERVATIVELY 2015 HAS BEEN CAPTURED
     Route: 065
     Dates: start: 201502, end: 201506
  7. RITUXIMAB. [Suspect]
     Active Substance: RITUXIMAB
     Indication: CHRONIC LYMPHOCYTIC LEUKAEMIA
     Route: 065
  8. CYCLOPHOSPHAMIDE. [Suspect]
     Active Substance: CYCLOPHOSPHAMIDE
     Indication: IMMUNOSUPPRESSANT DRUG THERAPY
     Dosage: UNK
     Route: 065
     Dates: start: 2015, end: 20150601
  9. RITUXIMAB. [Suspect]
     Active Substance: RITUXIMAB
     Indication: LYMPHADENOPATHY
     Route: 065
     Dates: start: 201502, end: 201506
  10. FLUDARABINE [Suspect]
     Active Substance: FLUDARABINE PHOSPHATE
     Indication: LYMPHADENOPATHY
     Dosage: SINCE THE START DATE WAS MENTIONED AS 2-6/2015 SO, CONSERVATIVELY 2015 HAS BEEN CAPTURED
     Route: 065
     Dates: start: 201502, end: 201506

REACTIONS (2)
  - Hepatitis E [Recovering/Resolving]
  - Liver function test abnormal [Recovered/Resolved]

NARRATIVE: CASE EVENT DATE: 201606
